FAERS Safety Report 11238622 (Version 2)
Quarter: 2015Q4

REPORT INFORMATION
  Report Type: Report from Study
  Country: BR (occurrence: BR)
  Receive Date: 20150706
  Receipt Date: 20151025
  Transmission Date: 20160304
  Serious: Yes (Hospitalization)
  Sender: FDA-Public Use
  Company Number: BR-ROCHE-1342204

PATIENT
  Sex: Female
  Weight: 98 kg

DRUGS (9)
  1. HYDROCHLOROTHIAZIDE. [Concomitant]
     Active Substance: HYDROCHLOROTHIAZIDE
  2. ACTEMRA [Suspect]
     Active Substance: TOCILIZUMAB
     Indication: RHEUMATOID ARTHRITIS
     Dosage: LAST DOSE PRIOR TO SAE : 01/SEP/2015
     Route: 042
     Dates: start: 20140128
  3. OMEPRAZOLE. [Concomitant]
     Active Substance: OMEPRAZOLE
  4. CAPTOPRIL. [Concomitant]
     Active Substance: CAPTOPRIL
  5. DICLOFENAC [Concomitant]
     Active Substance: DICLOFENAC
  6. DIAZEPAM. [Concomitant]
     Active Substance: DIAZEPAM
  7. DIPYRONE [Concomitant]
     Active Substance: DIPYRONE
  8. ARAVA [Concomitant]
     Active Substance: LEFLUNOMIDE
  9. MELOXICAM. [Concomitant]
     Active Substance: MELOXICAM

REACTIONS (11)
  - Musculoskeletal pain [Not Recovered/Not Resolved]
  - Back pain [Not Recovered/Not Resolved]
  - Arthralgia [Not Recovered/Not Resolved]
  - Headache [Unknown]
  - Localised infection [Not Recovered/Not Resolved]
  - Pain in extremity [Not Recovered/Not Resolved]
  - Abdominal pain upper [Not Recovered/Not Resolved]
  - Gait disturbance [Not Recovered/Not Resolved]
  - Bacterial infection [Not Recovered/Not Resolved]
  - Pyrexia [Unknown]
  - Pain in jaw [Not Recovered/Not Resolved]
